FAERS Safety Report 16161667 (Version 1)
Quarter: 2019Q2

REPORT INFORMATION
  Report Type: Spontaneous
  Country: ES (occurrence: ES)
  Receive Date: 20190405
  Receipt Date: 20190405
  Transmission Date: 20190711
  Serious: Yes (Death, Life-Threatening, Other)
  Sender: FDA-Public Use
  Company Number: ES-ACCORD-118228

PATIENT
  Age: 65 Year
  Sex: Female

DRUGS (4)
  1. BASILIXIMAB [Suspect]
     Active Substance: BASILIXIMAB
     Indication: IMMUNOSUPPRESSANT DRUG THERAPY
     Dates: start: 20050520
  2. TACROLIMUS. [Suspect]
     Active Substance: TACROLIMUS
     Indication: IMMUNOSUPPRESSANT DRUG THERAPY
     Dates: start: 20050520
  3. PREDNISONE. [Suspect]
     Active Substance: PREDNISONE
     Indication: IMMUNOSUPPRESSANT DRUG THERAPY
     Dates: start: 20050520
  4. METHYLPREDNISOLONE. [Suspect]
     Active Substance: METHYLPREDNISOLONE
     Indication: IMMUNOSUPPRESSANT DRUG THERAPY
     Dates: start: 20050520

REACTIONS (9)
  - Arrhythmia [Unknown]
  - Myocardial infarction [Fatal]
  - Urinary tract infection [Unknown]
  - Toxicity to various agents [Unknown]
  - Clostridium difficile infection [Unknown]
  - Pneumonia [Unknown]
  - Oesophageal candidiasis [Unknown]
  - Immune thrombocytopenic purpura [Unknown]
  - Cytomegalovirus infection [Unknown]
